FAERS Safety Report 20385788 (Version 1)
Quarter: 2022Q1

REPORT INFORMATION
  Report Type: Spontaneous
  Country: JP (occurrence: JP)
  Receive Date: 20220127
  Receipt Date: 20220127
  Transmission Date: 20220423
  Serious: Yes (Hospitalization)
  Sender: FDA-Public Use
  Company Number: JP-BIOGEN-2022BI01088452

PATIENT
  Age: 52 Year
  Sex: Female
  Weight: 71.2 kg

DRUGS (2)
  1. TYSABRI [Suspect]
     Active Substance: NATALIZUMAB
     Indication: Relapsing-remitting multiple sclerosis
     Route: 041
     Dates: start: 20160721, end: 20210914
  2. ELDECALCITOL [Concomitant]
     Active Substance: ELDECALCITOL
     Indication: Relapsing-remitting multiple sclerosis
     Route: 048

REACTIONS (2)
  - Progressive multifocal leukoencephalopathy [Not Recovered/Not Resolved]
  - Prescribed underdose [Unknown]

NARRATIVE: CASE EVENT DATE: 20210801
